FAERS Safety Report 10621522 (Version 1)
Quarter: 2014Q4

REPORT INFORMATION
  Report Type: Spontaneous
  Country: US (occurrence: US)
  Receive Date: 20141203
  Receipt Date: 20141203
  Transmission Date: 20150529
  Serious: Yes (Other)
  Sender: FDA-Public Use
  Company Number: US-CIPLA LTD.-2014US02271

PATIENT

DRUGS (6)
  1. FILGRASTIM [Concomitant]
     Active Substance: FILGRASTIM
     Indication: NEUROBLASTOMA
     Dosage: 5 MG/KG/DAY ON DAY 6 UNTIL ABSOLUTE NEUTROPHIL COUNT GREATER THAN 750/MM3 POST-NADIR
  2. TOPOTECAN [Suspect]
     Active Substance: TOPOTECAN\TOPOTECAN HYDROCHLORIDE
     Indication: NEUROBLASTOMA
     Dosage: 0.5 MG/M2/DAY FOR 3 DAYS (DAYS 1, 2, AND 3) OVER 30 MINUTE
  3. MESNA. [Concomitant]
     Active Substance: MESNA
     Indication: NEUROBLASTOMA
     Dosage: 360 MG/M2 WAS ADMINISTERED ON DAYS 1 THROUGH 5 AT 4 AND 8 HOUR
  4. CARBOPLATIN. [Suspect]
     Active Substance: CARBOPLATIN
     Indication: NEUROBLASTOMA
     Dosage: AUC OF 3 MG/ML/MIN FOR 3 DAYS (DAYS 1, 2, AND 3)
  5. IFOSFAMIDE. [Suspect]
     Active Substance: IFOSFAMIDE
     Indication: NEUROBLASTOMA
     Dosage: 3,000 MG/M2/DAY FOR 3 DAYS (DAYS 1, 2, AND 3)
  6. IV HYDRATION THERAPY [Concomitant]
     Indication: NEUROBLASTOMA
     Dosage: 6 HOUR AFTER CARBOPLATIN DOSE FOR 5 DAYS

REACTIONS (1)
  - Disease progression [Unknown]
